FAERS Safety Report 14166602 (Version 3)
Quarter: 2017Q4

REPORT INFORMATION
  Report Type: Report from Study
  Country: None (occurrence: CH)
  Receive Date: 20171107
  Receipt Date: 20171110
  Transmission Date: 20180321
  Serious: Yes (Death)
  Sender: FDA-Public Use
  Company Number: CH-ABBVIE-17K-151-2155681-00

PATIENT
  Age: 76 Year
  Sex: Female

DRUGS (8)
  1. DUODOPA [Suspect]
     Active Substance: CARBIDOPA\LEVODOPA
     Indication: PARKINSON^S DISEASE
     Dosage: MORNING DOSE 3.4ML?CONTINUOUS RATE 3.0ML/H?1 CASSETTE PER 24H?16H THERAPY
     Route: 050
     Dates: start: 20110608
  2. QUETIAPIN [Concomitant]
     Active Substance: QUETIAPINE
     Indication: PRODUCT USED FOR UNKNOWN INDICATION
     Dosage: GRADUAL REDUCTION ACCORDING TO SEPARATE SCHEME
  3. ASPIRIN CARDIO 100 [Concomitant]
     Active Substance: ASPIRIN
     Indication: PRODUCT USED FOR UNKNOWN INDICATION
  4. LEPONEX [Concomitant]
     Active Substance: CLOZAPINE
     Indication: PRODUCT USED FOR UNKNOWN INDICATION
     Dosage: INCREASE ACCORDING TO A SEPARATE SCHEME
     Dates: start: 20171016
  5. ELTROXIN [Concomitant]
     Active Substance: LEVOTHYROXINE
     Indication: PRODUCT USED FOR UNKNOWN INDICATION
  6. DAFALGAN [Concomitant]
     Active Substance: ACETAMINOPHEN
     Indication: PRODUCT USED FOR UNKNOWN INDICATION
  7. AMIODARONE MEPHA 200 [Concomitant]
     Indication: PRODUCT USED FOR UNKNOWN INDICATION
  8. CARBIDOPA/LEVODOPA CR 50/200 [Concomitant]
     Indication: PRODUCT USED FOR UNKNOWN INDICATION
     Dosage: IN THE EVENING

REACTIONS (3)
  - General physical health deterioration [Fatal]
  - Vomiting [Fatal]
  - Nausea [Fatal]

NARRATIVE: CASE EVENT DATE: 20171101
